FAERS Safety Report 8395142-2 (Version None)
Quarter: 2012Q2

REPORT INFORMATION
  Report Type: 
  Country: None (occurrence: None)
  Receive Date: 20120530
  Receipt Date: 20120521
  Transmission Date: 20120825
  Serious: Yes (Other)
  Sender: FDA-Public Use
  Company Number: IE-ASTRAZENECA-2012SE16283

PATIENT
  Age: 659 Month
  Sex: Female
  Weight: 60 kg

DRUGS (2)
  1. NEXIUM [Suspect]
     Indication: DYSPEPSIA
     Route: 048
     Dates: start: 20111201, end: 20120201
  2. DOMPERIDONE [Concomitant]
     Indication: NAUSEA
     Route: 048
     Dates: start: 20111201

REACTIONS (2)
  - ENDOMETRIAL CANCER [None]
  - BLOOD MAGNESIUM DECREASED [None]
